FAERS Safety Report 14974443 (Version 1)
Quarter: 2018Q2

REPORT INFORMATION
  Report Type: Spontaneous
  Country: US (occurrence: US)
  Receive Date: 20180514
  Receipt Date: 20180514
  Transmission Date: 20180711
  Serious: Yes (Other)
  Sender: FDA-Public Use
  Company Number: None

PATIENT
  Age: 65 Year
  Sex: Female
  Weight: 112.5 kg

DRUGS (8)
  1. HYDROXYZINE [Concomitant]
     Active Substance: HYDROXYZINE HYDROCHLORIDE
  2. OMEPRASOL [Concomitant]
  3. VIT B-12 [Concomitant]
  4. FENTANYL TRANSDERMAL SYSTEM [Suspect]
     Active Substance: FENTANYL
     Indication: INTERVERTEBRAL DISC PROTRUSION
     Dosage: QUANTITY:5 DF DOSAGE FORM;OTHER FREQUENCY:EVERY 72 HOURS;?
     Route: 062
  5. FENTANYL TRANSDERMAL SYSTEM [Suspect]
     Active Substance: FENTANYL
     Indication: SYSTEMIC LUPUS ERYTHEMATOSUS
     Dosage: QUANTITY:5 DF DOSAGE FORM;OTHER FREQUENCY:EVERY 72 HOURS;?
     Route: 062
  6. CHLORTHALIDONE. [Concomitant]
     Active Substance: CHLORTHALIDONE
  7. FENTANYL TRANSDERMAL SYSTEM [Suspect]
     Active Substance: FENTANYL
     Indication: NERVE INJURY
     Dosage: QUANTITY:5 DF DOSAGE FORM;OTHER FREQUENCY:EVERY 72 HOURS;?
     Route: 062
  8. LEVOTHYROXIN [Concomitant]
     Active Substance: LEVOTHYROXINE

REACTIONS (8)
  - Hyperhidrosis [None]
  - Withdrawal syndrome [None]
  - Muscle twitching [None]
  - Diarrhoea [None]
  - Neuralgia [None]
  - Nausea [None]
  - Drug ineffective [None]
  - Product quality issue [None]

NARRATIVE: CASE EVENT DATE: 20180509
